FAERS Safety Report 7893107-8 (Version None)
Quarter: 2011Q4

REPORT INFORMATION
  Report Type: 
  Country: None (occurrence: None)
  Receive Date: 20111104
  Receipt Date: 20111028
  Transmission Date: 20120403
  Serious: Yes (Other)
  Sender: FDA-Public Use
  Company Number: US-B.I. PHARMACEUTICALS,INC./RIDGEFIELD-2010-BP-14112BP

PATIENT
  Sex: Male

DRUGS (8)
  1. ATENOLOL [Concomitant]
     Indication: HYPERTENSION
     Dosage: 50 MG
     Route: 048
  2. ASPIRIN [Concomitant]
     Indication: ROUTINE HEALTH MAINTENANCE
     Dosage: 81 MG
     Route: 048
  3. NORVASC [Concomitant]
     Indication: HYPERTENSION
     Dosage: 5 MG
     Route: 048
  4. PRADAXA [Suspect]
     Indication: CEREBROVASCULAR ACCIDENT PROPHYLAXIS
     Dosage: 300 MG
     Route: 048
     Dates: start: 20101101
  5. OMEPRAZOLE [Concomitant]
     Dosage: 20 MG
     Route: 048
  6. IRON SHOTS [Concomitant]
  7. PRADAXA [Suspect]
     Indication: ATRIAL FIBRILLATION
  8. SIMVASTATIN [Concomitant]
     Indication: BLOOD CHOLESTEROL INCREASED
     Dosage: 20 MG
     Route: 048

REACTIONS (7)
  - PAIN [None]
  - AORTIC ANEURYSM [None]
  - PLATELET COUNT INCREASED [None]
  - CONTUSION [None]
  - WHITE BLOOD CELL COUNT INCREASED [None]
  - PERIPHERAL COLDNESS [None]
  - ASTHENIA [None]
